FAERS Safety Report 20818808 (Version 2)
Quarter: 2022Q4

REPORT INFORMATION
  Report Type: Report from Study
  Country: JP (occurrence: JP)
  Receive Date: 20220512
  Receipt Date: 20221017
  Transmission Date: 20230113
  Serious: No
  Sender: FDA-Public Use
  Company Number: JP-BAYER-2022A049586

PATIENT
  Age: 51 Year
  Sex: Female
  Weight: 61.1 kg

DRUGS (2)
  1. VITRAKVI [Suspect]
     Active Substance: LAROTRECTINIB
     Indication: NTRK gene fusion overexpression
     Dosage: 100 MG, BID
     Dates: start: 20210928, end: 20220516
  2. VITRAKVI [Suspect]
     Active Substance: LAROTRECTINIB
     Indication: NTRK gene fusion overexpression
     Dosage: 100 MG, BID
     Dates: start: 20220607

REACTIONS (4)
  - Myelosuppression [Recovered/Resolved]
  - Renal impairment [Not Recovered/Not Resolved]
  - Hypoalbuminaemia [Not Recovered/Not Resolved]
  - Hepatic function abnormal [Recovered/Resolved]

NARRATIVE: CASE EVENT DATE: 20211012
